FAERS Safety Report 16368390 (Version 1)
Quarter: 2019Q2

REPORT INFORMATION
  Report Type: Spontaneous
  Country: TH (occurrence: TH)
  Receive Date: 20190529
  Receipt Date: 20190529
  Transmission Date: 20190711
  Serious: No
  Sender: FDA-Public Use
  Company Number: TH-APOPHARMA USA, INC.-2019AP015244

PATIENT
  Age: 5 Year
  Sex: Female
  Weight: 19 kg

DRUGS (1)
  1. ALKERAN [Suspect]
     Active Substance: MELPHALAN
     Indication: RETINOBLASTOMA
     Dosage: 5 MG, Q.M.T.
     Route: 013
     Dates: start: 20100607, end: 20100816

REACTIONS (1)
  - Product deposit [Recovering/Resolving]

NARRATIVE: CASE EVENT DATE: 20120516
